FAERS Safety Report 19833667 (Version 2)
Quarter: 2021Q3

REPORT INFORMATION
  Report Type: Report from Study
  Country: CA (occurrence: CA)
  Receive Date: 20210915
  Receipt Date: 20210920
  Transmission Date: 20211014
  Serious: Yes (Death, Hospitalization, Other)
  Sender: FDA-Public Use
  Company Number: CA-MYLANLABS-2021M1045744

PATIENT
  Age: 82 Year
  Sex: Female

DRUGS (2)
  1. HULIO [Suspect]
     Active Substance: ADALIMUMAB-FKJP
     Indication: CROHN^S DISEASE
     Dosage: 40 MILLIGRAM, QW
  2. HULIO [Suspect]
     Active Substance: ADALIMUMAB-FKJP
     Indication: HIDRADENITIS

REACTIONS (12)
  - Fall [Unknown]
  - Product dose omission issue [Unknown]
  - Death [Fatal]
  - Pancreatic carcinoma [Unknown]
  - Pain [Unknown]
  - Erythema [Unknown]
  - Dyspnoea [Unknown]
  - Swelling [Unknown]
  - Abdominal pain upper [Unknown]
  - Feeling hot [Unknown]
  - Asthenia [Unknown]
  - Infection [Unknown]

NARRATIVE: CASE EVENT DATE: 20210901
